FAERS Safety Report 14783468 (Version 5)
Quarter: 2018Q2

REPORT INFORMATION
  Report Type: Report from Study
  Country: DE (occurrence: DE)
  Receive Date: 20180420
  Receipt Date: 20180627
  Transmission Date: 20180711
  Serious: Yes (Other)
  Sender: FDA-Public Use
  Company Number: DE-PFIZER INC-2018156687

PATIENT
  Age: 43 Year
  Sex: Male

DRUGS (6)
  1. OXAZEPAM. [Suspect]
     Active Substance: OXAZEPAM
     Dosage: UNK
  2. PREGABALIN. [Suspect]
     Active Substance: PREGABALIN
     Dosage: UNK
  3. DIAZEPAM. [Suspect]
     Active Substance: DIAZEPAM
     Dosage: UNK
  4. LEVOMETHADONE [Suspect]
     Active Substance: LEVOMETHADONE
     Dosage: UNK
  5. METHYLONE [Suspect]
     Active Substance: METHYLPREDNISOLONE
     Dosage: UNK
  6. 3,4-METHYLENEDIOXYPYROVALERONE [Suspect]
     Active Substance: METHYLENEDIOXYPYROVALERONE HYDROCHLORIDE
     Dosage: UNK

REACTIONS (8)
  - Toxicity to various agents [Unknown]
  - Gait disturbance [Unknown]
  - Abnormal behaviour [Unknown]
  - Dysarthria [Unknown]
  - Agitation [Unknown]
  - Mood swings [Unknown]
  - Aggression [Unknown]
  - Logorrhoea [Unknown]
